FAERS Safety Report 4319821-9 (Version None)
Quarter: 2004Q1

REPORT INFORMATION
  Report Type: 
  Country: None (occurrence: None)
  Receive Date: 20040319
  Receipt Date: 19981216
  Transmission Date: 20041129
  Serious: Yes (Congenital Anomaly, Other)
  Sender: FDA-Public Use
  Company Number: 98AUS10046

PATIENT
  Age: 0 Day
  Sex: 0

DRUGS (2)
  1. TEGRETOL [Suspect]
     Dosage: 200 MG, BID
     Route: 064
  2. TEGRETOL [Suspect]
     Dosage: 300 MG, BID
     Route: 064

REACTIONS (4)
  - ACQUIRED TRACHEO-OESOPHAGEAL FISTULA [None]
  - CONGENITAL OESOPHAGEAL ANOMALY [None]
  - DRUG EXPOSURE DURING PREGNANCY [None]
  - MATERNAL DRUGS AFFECTING FOETUS [None]
